FAERS Safety Report 22970748 (Version 3)
Quarter: 2024Q1

REPORT INFORMATION
  Report Type: Spontaneous
  Country: US (occurrence: None)
  Receive Date: 20230922
  Receipt Date: 20240103
  Transmission Date: 20240410
  Serious: No
  Sender: FDA-Public Use
  Company Number: 2023A212671

PATIENT
  Age: 79 Year
  Sex: Male
  Weight: 72.6 kg

DRUGS (2)
  1. SYMBICORT [Suspect]
     Active Substance: BUDESONIDE\FORMOTEROL FUMARATE DIHYDRATE
     Indication: Chronic obstructive pulmonary disease
     Dosage: 160/4.5MCG UNKNOWN UNKNOWN
     Route: 055
  2. BUDESONIDE\FORMOTEROL [Suspect]
     Active Substance: BUDESONIDE\FORMOTEROL
     Dosage: DOSE AND FREQUENCY: UNKNOWN; 160/4.5MCG UNKNOWN
     Route: 055

REACTIONS (4)
  - Dyspnoea [Unknown]
  - Dyspnoea [Unknown]
  - Wheezing [Unknown]
  - Drug ineffective [Unknown]
